FAERS Safety Report 25382566 (Version 1)
Quarter: 2025Q2

REPORT INFORMATION
  Report Type: Spontaneous
  Country: GB (occurrence: GB)
  Receive Date: 20250601
  Receipt Date: 20250601
  Transmission Date: 20250717
  Serious: Yes (Life-Threatening)
  Sender: ABBVIE
  Company Number: GB-ABBVIE-6204546

PATIENT
  Age: 48 Year
  Sex: Male
  Weight: 89 kg

DRUGS (4)
  1. RINVOQ [Suspect]
     Active Substance: UPADACITINIB
     Indication: Crohn^s disease
     Route: 048
     Dates: start: 202411, end: 20250318
  2. RINVOQ [Suspect]
     Active Substance: UPADACITINIB
     Indication: Crohn^s disease
     Route: 048
     Dates: start: 202409, end: 202411
  3. INFLIXIMAB [Concomitant]
     Active Substance: INFLIXIMAB
     Indication: Crohn^s disease
     Route: 042
     Dates: end: 202409
  4. MESALAMINE [Concomitant]
     Active Substance: MESALAMINE
     Indication: Crohn^s disease
     Route: 048
     Dates: start: 202409

REACTIONS (2)
  - Embolic cerebral infarction [Recovered/Resolved]
  - Hemiplegia [Unknown]

NARRATIVE: CASE EVENT DATE: 20250101
